FAERS Safety Report 4681070-2 (Version None)
Quarter: 2005Q2

REPORT INFORMATION
  Report Type: 
  Country: None (occurrence: None)
  Receive Date: 20050603
  Receipt Date: 20050530
  Transmission Date: 20051028
  Serious: Yes (Life-Threatening)
  Sender: FDA-Public Use
  Company Number: BR-GLAXOSMITHKLINE-A0560856A

PATIENT
  Age: 67 Year
  Sex: Male
  Weight: 68 kg

DRUGS (3)
  1. PARNATE [Suspect]
     Indication: DEPRESSION
     Dosage: 10MG TWICE PER DAY
     Route: 048
     Dates: start: 20050525
  2. ZYPREXA [Concomitant]
     Route: 048
  3. CLONAZEPAM [Concomitant]
     Route: 048

REACTIONS (6)
  - AMNESIA [None]
  - HALLUCINATION [None]
  - SEDATION [None]
  - SUICIDAL IDEATION [None]
  - URINARY RETENTION [None]
  - VISUAL ACUITY REDUCED [None]
